FAERS Safety Report 24641130 (Version 1)
Quarter: 2024Q4

REPORT INFORMATION
  Report Type: Spontaneous
  Country: US (occurrence: US)
  Receive Date: 20241120
  Receipt Date: 20241120
  Transmission Date: 20250114
  Serious: Yes (Other)
  Sender: RANBAXY
  Company Number: US-SUN PHARMACEUTICAL INDUSTRIES LTD-2024R1-479560

PATIENT
  Age: 65 Year
  Sex: Female

DRUGS (3)
  1. TEMOZOLOMIDE [Suspect]
     Active Substance: TEMOZOLOMIDE
     Indication: Glioblastoma
     Dosage: UNK
     Route: 065
  2. PRALSETINIB [Suspect]
     Active Substance: PRALSETINIB
     Indication: Non-small cell lung cancer
     Dosage: 200 MILLIGRAM
     Route: 065
  3. PRALSETINIB [Suspect]
     Active Substance: PRALSETINIB
     Dosage: 400 MILLIGRAM
     Route: 065

REACTIONS (2)
  - Therapeutic response decreased [Unknown]
  - Pneumonitis [Unknown]
